FAERS Safety Report 5976817-9 (Version None)
Quarter: 2008Q4

REPORT INFORMATION
  Report Type: 
  Country: None (occurrence: None)
  Receive Date: 20081203
  Receipt Date: 20080215
  Transmission Date: 20090506
  Serious: No
  Sender: FDA-Public Use
  Company Number: US-AMGEN-KDL264651

PATIENT
  Sex: Female

DRUGS (9)
  1. ENBREL [Suspect]
     Indication: RHEUMATOID ARTHRITIS
     Route: 058
     Dates: start: 20070901
  2. ENBREL [Suspect]
     Indication: DRUG USE FOR UNKNOWN INDICATION
  3. CYMBALTA [Concomitant]
     Route: 048
  4. LASIX [Concomitant]
     Route: 048
  5. K-DUR [Concomitant]
  6. SYNTHROID [Concomitant]
     Route: 048
  7. VASOTEC [Concomitant]
     Route: 048
  8. VERAPAMIL HYDROCHLORIDE [Concomitant]
  9. DARVOCET-N 100 [Concomitant]

REACTIONS (4)
  - ARTHRALGIA [None]
  - HERPES ZOSTER [None]
  - MUSCULOSKELETAL STIFFNESS [None]
  - POOR QUALITY SLEEP [None]
